FAERS Safety Report 5319003-8 (Version None)
Quarter: 2007Q2

REPORT INFORMATION
  Report Type: 
  Country: None (occurrence: None)
  Receive Date: 20070501
  Receipt Date: 20070420
  Transmission Date: 20071010
  Serious: Yes (Hospitalization)
  Sender: FDA-Public Use
  Company Number: 2007BI008567

PATIENT
  Age: 35 Year
  Sex: Female
  Weight: 55.7924 kg

DRUGS (3)
  1. AVONEX [Suspect]
     Indication: MULTIPLE SCLEROSIS
     Dosage: 30 UG; QW; IM
     Route: 030
     Dates: start: 19990101, end: 20030101
  2. AVONEX [Suspect]
     Indication: MULTIPLE SCLEROSIS
     Dosage: 30 UG; QW; IM
     Route: 030
     Dates: start: 20030101
  3. CHEMOTHERAPY [Concomitant]

REACTIONS (8)
  - BLOOD DISORDER [None]
  - FEELING COLD [None]
  - FEELING HOT [None]
  - INFECTION [None]
  - INFLUENZA LIKE ILLNESS [None]
  - LOCALISED INFECTION [None]
  - POST PROCEDURAL COMPLICATION [None]
  - STRESS [None]
